FAERS Safety Report 6602630-5 (Version None)
Quarter: 2010Q1

REPORT INFORMATION
  Report Type: 
  Country: None (occurrence: None)
  Receive Date: 20100225
  Receipt Date: 20100217
  Transmission Date: 20100710
  Serious: Yes (Death)
  Sender: FDA-Public Use
  Company Number: JP-GENENTECH-298299

PATIENT
  Sex: Male

DRUGS (16)
  1. RITUXAN [Suspect]
     Indication: MANTLE CELL LYMPHOMA
     Dosage: 603 MG, UNK
     Route: 042
     Dates: start: 20090909
  2. NEUTROGIN [Suspect]
     Indication: STEM CELL TRANSPLANT
     Dosage: 500 A?G, QD
     Route: 042
     Dates: start: 20090921, end: 20090923
  3. ENDOXAN [Concomitant]
     Indication: MANTLE CELL LYMPHOMA
     Dosage: 500 MG, QD
     Dates: start: 20090910, end: 20090912
  4. DEXAMETHASONE SODIUM PHOSPHATE [Concomitant]
     Indication: MANTLE CELL LYMPHOMA
     Dosage: 40 MG, QD
     Dates: start: 20090910, end: 20090913
  5. DEXAMETHASONE SODIUM PHOSPHATE [Concomitant]
     Dosage: 40 MG, QD
     Dates: start: 20090920, end: 20090923
  6. UROMITEXAN [Concomitant]
     Indication: MANTLE CELL LYMPHOMA
     Dosage: 1000 MG, QD
     Dates: start: 20090910, end: 20090912
  7. ONCOVIN [Concomitant]
     Indication: MANTLE CELL LYMPHOMA
     Dosage: 2 MG, QD
     Dates: start: 20090913, end: 20090913
  8. ONCOVIN [Concomitant]
     Dosage: 2 MG, QD
     Dates: start: 20090920, end: 20090920
  9. ADRIACIN [Concomitant]
     Indication: MANTLE CELL LYMPHOMA
     Dosage: 85 MG, QD
     Dates: start: 20090913, end: 20090913
  10. ITRIZOLE [Concomitant]
     Indication: INFLAMMATORY BOWEL DISEASE
     Dosage: 2 UNK, QD
     Route: 048
     Dates: start: 20090910, end: 20090924
  11. LEVOFLOXACIN [Concomitant]
     Indication: INFLAMMATORY BOWEL DISEASE
     Dosage: 3 TABLET, QD
     Route: 048
     Dates: start: 20090910, end: 20090924
  12. FAMOTIDINE [Concomitant]
     Indication: PROPHYLAXIS
     Dosage: 2 TABLET, QD
     Route: 048
     Dates: start: 20090910, end: 20090924
  13. BIO-THREE [Concomitant]
     Indication: PROPHYLAXIS
     Dosage: 3 TABLET, QD
     Route: 048
     Dates: start: 20090910, end: 20090924
  14. NAUZELIN [Concomitant]
     Indication: PROPHYLAXIS
     Dosage: 3 TABLET, QD
     Route: 048
     Dates: start: 20090910, end: 20090924
  15. AMLODINE [Concomitant]
     Indication: HYPERTENSION
     Dosage: 0.5 TABLET, QD
     Route: 048
     Dates: start: 20090910, end: 20090924
  16. ALLOPURINOL [Concomitant]
     Indication: HYPERURICAEMIA
     Dosage: 1 TABLET, QD
     Route: 048
     Dates: start: 20090910, end: 20090924

REACTIONS (1)
  - ACUTE LUNG INJURY [None]
